FAERS Safety Report 8917110 (Version 2)
Quarter: 2013Q2

REPORT INFORMATION
  Report Type: Spontaneous
  Country: US (occurrence: US)
  Receive Date: 20121120
  Receipt Date: 20130519
  Transmission Date: 20140414
  Serious: No
  Sender: FDA-Public Use
  Company Number: US-ALLERGAN-1212592US

PATIENT
  Sex: Female
  Weight: 44.44 kg

DRUGS (1)
  1. LASTACAFT [Suspect]
     Indication: HYPERSENSITIVITY
     Dosage: 1 GTT, QD
     Route: 047

REACTIONS (3)
  - Skin discolouration [Recovered/Resolved]
  - Ocular hyperaemia [Recovered/Resolved]
  - Eye swelling [Recovered/Resolved]
